FAERS Safety Report 21583944 (Version 1)
Quarter: 2022Q4

REPORT INFORMATION
  Report Type: Report from Study
  Country: IT (occurrence: IT)
  Receive Date: 20221111
  Receipt Date: 20221111
  Transmission Date: 20230113
  Serious: Yes (Other)
  Sender: FDA-Public Use
  Company Number: None

PATIENT
  Age: 33 Year
  Sex: Female
  Weight: 79 kg

DRUGS (3)
  1. OXALIPLATIN [Suspect]
     Active Substance: OXALIPLATIN
     Indication: Gastric cancer
     Dosage: UNIT DOSE : 170 MG , THERAPY END DATE : NASK , ADDITIONAL INFORMATION : FOLLOWING THE REACTIONS OF 1
     Dates: start: 20220726
  2. FLUOROURACIL [Suspect]
     Active Substance: FLUOROURACIL
     Indication: Gastric cancer
     Dosage: UNIT DOSE : 4654 MG , THERAPY END DATE : NASK , ADDITIONAL INFORMATION : FOLLOWING THE REACTIONS OF
     Dates: start: 20220726
  3. DOCETAXEL [Suspect]
     Active Substance: DOCETAXEL
     Indication: Gastric cancer
     Dosage: UNIT DOSE : 89 MG , THERAPY END DATE : NASK , ADDITIONAL INFORMATION : FOLLOWING THE REACTIONS OF 16
     Dates: start: 20220726

REACTIONS (3)
  - Neutropenia [Recovering/Resolving]
  - Diarrhoea [Recovered/Resolved]
  - Hypertransaminasaemia [Recovering/Resolving]

NARRATIVE: CASE EVENT DATE: 20220810
